FAERS Safety Report 4320339-8 (Version None)
Quarter: 2004Q1

REPORT INFORMATION
  Report Type: 
  Country: None (occurrence: None)
  Receive Date: 20040317
  Receipt Date: 20040303
  Transmission Date: 20041129
  Serious: Yes (Hospitalization)
  Sender: FDA-Public Use
  Company Number: 2004015781

PATIENT
  Age: 56 Year
  Sex: Male

DRUGS (7)
  1. NORVASC [Suspect]
     Indication: ILL-DEFINED DISORDER
     Dosage: 5 MG, ORAL
     Route: 048
     Dates: start: 20030703, end: 20030708
  2. LITHIUM CARBONATE [Suspect]
     Indication: ILL-DEFINED DISORDER
     Dosage: 900 MG, ORAL
     Route: 048
     Dates: start: 20030603, end: 20030829
  3. ESOMEPRAZOLE (ESOMEPRAZOLE) [Suspect]
     Indication: ILL-DEFINED DISORDER
     Dosage: 40 MG, ORAL
     Route: 048
     Dates: start: 20030531, end: 20030708
  4. CITALOPRAM HYDROBROMIDE (CITALOPRAM HYDROBROMIDE) [Concomitant]
  5. TRIMIPRAMINE MALEATE [Concomitant]
  6. OXAZEPAM [Concomitant]
  7. INSULIN [Concomitant]

REACTIONS (5)
  - CHILLS [None]
  - CONFUSIONAL STATE [None]
  - DRUG TOXICITY [None]
  - HYPOKINESIA [None]
  - STUPOR [None]
